FAERS Safety Report 4805522-7 (Version None)
Quarter: 2005Q4

REPORT INFORMATION
  Report Type: 
  Country: None (occurrence: None)
  Receive Date: 20051018
  Receipt Date: 20051006
  Transmission Date: 20060501
  Serious: Yes (Other)
  Sender: FDA-Public Use
  Company Number: S05-USA-04140-01

PATIENT
  Age: 25 Year
  Sex: Female

DRUGS (3)
  1. CITALOPRAM [Suspect]
     Indication: DEPRESSION
     Dosage: 20 MG QD PO
     Route: 048
     Dates: start: 20050601, end: 20050824
  2. DEPO-PROVERA (MEDROXYPROTESTERONE0 [Concomitant]
     Indication: CONTRACEPTION
  3. XANAX [Concomitant]

REACTIONS (4)
  - ARTHRALGIA [None]
  - BONE PAIN [None]
  - MYOFASCIAL PAIN SYNDROME [None]
  - NAUSEA [None]
